FAERS Safety Report 10024103 (Version 2)
Quarter: 2014Q2

REPORT INFORMATION
  Report Type: Spontaneous
  Country: US (occurrence: US)
  Receive Date: 20140320
  Receipt Date: 20140404
  Transmission Date: 20141212
  Serious: No
  Sender: FDA-Public Use
  Company Number: US-PFIZER INC-2014075057

PATIENT
  Age: 89 Year
  Sex: Female
  Weight: 73.92 kg

DRUGS (11)
  1. LATANOPROST [Suspect]
     Indication: INTRAOCULAR PRESSURE TEST
     Dosage: 1 GTT, 1X/DAY
     Route: 047
     Dates: start: 20130901, end: 20131019
  2. LOSARTAN [Concomitant]
     Indication: BLOOD PRESSURE ABNORMAL
     Dosage: 50 MG, 1X/DAY
  3. HYDROCHLOROTHIAZIDE/METOPROLOL [Concomitant]
     Indication: BLOOD PRESSURE
     Dosage: UNK, 2X/DAY
  4. SIMVASTATIN [Concomitant]
     Indication: BLOOD CHOLESTEROL INCREASED
     Dosage: 50 MG, 1X/DAY
  5. POTASSIUM CHLORIDE [Concomitant]
     Dosage: 8 MG, 1X/DAY
  6. OSTEO BI-FLEX [Concomitant]
     Dosage: UNK, 2X/DAY
  7. OMEGA-3 [Concomitant]
     Dosage: 1000 MG, 1X/DAY
  8. CALCIUM [Concomitant]
     Dosage: 600 MG, ALTERNATE DAY
  9. ASPIRIN [Concomitant]
     Dosage: 81 MG, 1X/DAY
  10. TIMOLOL MALEATE [Concomitant]
     Dosage: 1 GTT, 2X/DAY
     Route: 047
  11. ZYLOPRIM [Concomitant]
     Dosage: 100 MG, 1X/DAY

REACTIONS (1)
  - Drug ineffective [Unknown]
